FAERS Safety Report 5944919-9 (Version None)
Quarter: 2008Q4

REPORT INFORMATION
  Report Type: 
  Country: None (occurrence: None)
  Receive Date: 20081107
  Receipt Date: 20081104
  Transmission Date: 20090506
  Serious: Yes (Other)
  Sender: FDA-Public Use
  Company Number: US-RB-005820-08

PATIENT
  Age: 56 Year
  Sex: Male

DRUGS (5)
  1. SUBOXONE [Suspect]
     Route: 060
     Dates: start: 20081028
  2. CLONIDINE [Concomitant]
     Indication: INSOMNIA
     Route: 048
     Dates: start: 20081028
  3. AUGMENTIN '125' [Concomitant]
     Indication: INFECTION
     Route: 048
     Dates: start: 20081026, end: 20081102
  4. CADUET [Concomitant]
     Indication: HYPERTENSION
     Dosage: 1 TABLET EVERY DAY
     Route: 048
     Dates: start: 20060101
  5. ENALAPRIL MALEATE [Concomitant]
     Indication: HYPERTENSION
     Route: 048
     Dates: start: 20060101

REACTIONS (2)
  - DYSGEUSIA [None]
  - HALLUCINATION [None]
